FAERS Safety Report 9409988 (Version 3)
Quarter: 2014Q2

REPORT INFORMATION
  Report Type: Spontaneous
  Country: US (occurrence: US)
  Receive Date: 20130719
  Receipt Date: 20140409
  Transmission Date: 20141212
  Serious: Yes (Hospitalization)
  Sender: FDA-Public Use
  Company Number: US-BAYER-2013-086120

PATIENT
  Age: 24 Year
  Sex: Female
  Weight: 58.5 kg

DRUGS (1)
  1. MIRENA [Suspect]
     Indication: CONTRACEPTION
     Dosage: 20 MCG/24HR, CONT
     Route: 015
     Dates: start: 20090112, end: 20110728

REACTIONS (8)
  - Uterine perforation [None]
  - Procedural pain [None]
  - Scar [None]
  - Injury [None]
  - Uterine pain [None]
  - Back pain [None]
  - Device misuse [None]
  - Device issue [None]
